FAERS Safety Report 5897382-0 (Version None)
Quarter: 2008Q3

REPORT INFORMATION
  Report Type: 
  Country: None (occurrence: None)
  Receive Date: 20080915
  Receipt Date: 20071005
  Transmission Date: 20090109
  Serious: Yes (Other)
  Sender: FDA-Public Use
  Company Number: PHEH2007US09560

PATIENT
  Sex: Female

DRUGS (2)
  1. ZELNORM [Suspect]
  2. INSULIN (INSULIN) [Concomitant]

REACTIONS (2)
  - DEHYDRATION [None]
  - DIARRHOEA [None]
